FAERS Safety Report 8554571-4 (Version None)
Quarter: 2012Q3

REPORT INFORMATION
  Report Type: 
  Country: None (occurrence: None)
  Receive Date: 20120731
  Receipt Date: 20120725
  Transmission Date: 20120928
  Serious: Yes (Hospitalization, Other)
  Sender: FDA-Public Use
  Company Number: US-009507513-2010SP001829

PATIENT

DRUGS (2)
  1. NUVARING [Suspect]
     Indication: CONTRACEPTION
     Route: 067
     Dates: start: 20070601, end: 20080101
  2. VITAMINS (UNSPECIFIED) [Concomitant]
     Dosage: UNK UNK, QD
     Dates: start: 20070101

REACTIONS (9)
  - DEEP VEIN THROMBOSIS [None]
  - WEIGHT INCREASED [None]
  - CONVULSION [None]
  - SMEAR CERVIX ABNORMAL [None]
  - SYNCOPE [None]
  - LUNG NEOPLASM [None]
  - PULMONARY EMBOLISM [None]
  - PAIN IN EXTREMITY [None]
  - THROMBOSIS [None]
